FAERS Safety Report 8231398-4 (Version None)
Quarter: 2012Q1

REPORT INFORMATION
  Report Type: 
  Country: None (occurrence: None)
  Receive Date: 20120323
  Receipt Date: 20120320
  Transmission Date: 20120608
  Serious: No
  Sender: FDA-Public Use
  Company Number: US-PFIZER INC-2012073515

PATIENT
  Sex: Male

DRUGS (3)
  1. ACETAMINOPHEN [Suspect]
     Dosage: UNK
  2. IBUPROFEN (ADVIL) [Suspect]
     Dosage: UNK
  3. CONTAC COLD CAPSULES [Suspect]
     Dosage: UNK

REACTIONS (3)
  - DIZZINESS [None]
  - GAIT DISTURBANCE [None]
  - BALANCE DISORDER [None]
